FAERS Safety Report 7090527-9 (Version None)
Quarter: 2010Q4

REPORT INFORMATION
  Report Type: 
  Country: None (occurrence: None)
  Receive Date: 20101012
  Receipt Date: 20100212
  Transmission Date: 20110411
  Serious: Yes (Other)
  Sender: FDA-Public Use
  Company Number: 1000010594

PATIENT
  Age: 56 Year
  Sex: Female

DRUGS (3)
  1. LEXAPRO [Suspect]
     Indication: BIPOLAR DISORDER
     Dosage: 20 MG (20 MG, 1 IN 1), ORAL
     Route: 048
     Dates: start: 20081027
  2. LEXAPRO [Suspect]
     Indication: DEPRESSION
     Dosage: 20 MG (20 MG, 1 IN 1), ORAL
     Route: 048
     Dates: start: 20081027
  3. LORTAB [Concomitant]

REACTIONS (1)
  - AGGRESSION [None]
